FAERS Safety Report 7190350-0 (Version None)
Quarter: 2010Q4

REPORT INFORMATION
  Report Type: 
  Country: None (occurrence: None)
  Receive Date: 20101207
  Receipt Date: 20101123
  Transmission Date: 20110411
  Serious: Yes (Life-Threatening, Hospitalization)
  Sender: FDA-Public Use
  Company Number: 2010SP033490

PATIENT
  Age: 64 Year
  Sex: Male
  Weight: 100 kg

DRUGS (8)
  1. BOCEPREVIR [Suspect]
     Indication: HEPATITIS C
     Dosage: 800 MG; TID; PO
     Route: 048
     Dates: start: 20100601, end: 20100613
  2. PEG-INTRON [Suspect]
     Indication: HEPATITIS C
     Dosage: 150 MCG; QW; SC
     Route: 058
     Dates: start: 20100506, end: 20100607
  3. RIBAVARIN [Suspect]
     Indication: HEPATITIS C
     Dosage: 600 MG;BID; PO , 500 MG;QD; PO
     Route: 048
     Dates: end: 20100613
  4. RIBAVARIN [Suspect]
     Indication: HEPATITIS C
     Dosage: 600 MG;BID; PO , 500 MG;QD; PO
     Route: 048
     Dates: start: 20100506
  5. CYMBALTA [Suspect]
     Indication: ATTENTION DEFICIT/HYPERACTIVITY DISORDER
     Dosage: 60 MG;QD; PO
     Route: 048
     Dates: start: 20100323
  6. LEVOTHYROXINE [Suspect]
     Indication: HYPERTHYROIDISM
     Dosage: 125 MCG;QD;  PO
     Route: 048
     Dates: start: 19970101
  7. PRAVASTATIN [Concomitant]
  8. ATENOLOL [Concomitant]

REACTIONS (7)
  - ABSCESS SOFT TISSUE [None]
  - CONFUSIONAL STATE [None]
  - DELIRIUM [None]
  - FALL [None]
  - HYPONATRAEMIA [None]
  - INJURY [None]
  - NECK PAIN [None]
